FAERS Safety Report 14662711 (Version 1)
Quarter: 2018Q1

REPORT INFORMATION
  Report Type: Spontaneous
  Country: DE (occurrence: DE)
  Receive Date: 20180321
  Receipt Date: 20180321
  Transmission Date: 20180509
  Serious: Yes (Other)
  Sender: FDA-Public Use
  Company Number: DE-NAPPMUNDI-GBR-2018-0053462

PATIENT
  Sex: Female

DRUGS (4)
  1. LYRICA [Concomitant]
     Active Substance: PREGABALIN
     Indication: OSTEOPOROSIS
     Dosage: 5 MG, DAILY
     Route: 048
  2. IBUPROFEN. [Concomitant]
     Active Substance: IBUPROFEN
     Indication: OSTEOPOROSIS
     Dosage: 600 MG, UNK
  3. BONVIVA                            /01304701/ [Suspect]
     Active Substance: IBANDRONATE SODIUM
     Indication: OSTEOPOROSIS
     Dosage: UNK, EVERY 3 MONTHS
     Route: 065
     Dates: start: 2015
  4. TARGIN [Suspect]
     Active Substance: NALOXONE HYDROCHLORIDE\OXYCODONE HYDROCHLORIDE
     Indication: OSTEOPOROSIS
     Dosage: 40/20 MG AND 10/5 MG DAILY; DOSAGE OF LESS THAN 40 MG
     Route: 048
     Dates: start: 2014

REACTIONS (4)
  - Hypersensitivity [Not Recovered/Not Resolved]
  - Swelling face [Not Recovered/Not Resolved]
  - Rash [Not Recovered/Not Resolved]
  - Burning sensation [Not Recovered/Not Resolved]

NARRATIVE: CASE EVENT DATE: 201802
